FAERS Safety Report 4415472-6 (Version None)
Quarter: 2004Q3

REPORT INFORMATION
  Report Type: 
  Country: None (occurrence: None)
  Receive Date: 20040730
  Receipt Date: 20040726
  Transmission Date: 20050211
  Serious: Yes (Hospitalization)
  Sender: FDA-Public Use
  Company Number: 2004224966FR

PATIENT
  Age: 15 Year
  Sex: Male

DRUGS (3)
  1. CLINDAMYCIN [Suspect]
     Indication: TOXOPLASMOSIS
     Dosage: 600 MG, QID,  IV
     Route: 042
     Dates: start: 20040430, end: 20010510
  2. PYRIMETHAMINE TAB [Suspect]
     Dosage: 50 MG, QD,ORAL
     Route: 048
     Dates: start: 20010430, end: 20010510
  3. DEPAKINE CHRONO (VALPROIC ACID) [Suspect]
     Dosage: 500 MG, BID, ORAL
     Route: 048
     Dates: start: 20010430, end: 20010515

REACTIONS (1)
  - PANCYTOPENIA [None]
